FAERS Safety Report 21091132 (Version 2)
Quarter: 2022Q3

REPORT INFORMATION
  Report Type: Spontaneous
  Country: JP (occurrence: JP)
  Receive Date: 20220716
  Receipt Date: 20220726
  Transmission Date: 20221026
  Serious: Yes (Other)
  Sender: FDA-Public Use
  Company Number: JP-Accord-269443

PATIENT
  Age: 59 Year
  Sex: Female

DRUGS (3)
  1. CARBOPLATIN [Suspect]
     Active Substance: CARBOPLATIN
     Indication: Small cell lung cancer
  2. PEMETREXED [Suspect]
     Active Substance: PEMETREXED
     Indication: Small cell lung cancer
  3. OSIMERTINIB [Concomitant]
     Active Substance: OSIMERTINIB
     Indication: Small cell lung cancer

REACTIONS (1)
  - Renal impairment [Unknown]
